FAERS Safety Report 4303203-X (Version None)
Quarter: 2004Q1

REPORT INFORMATION
  Report Type: 
  Country: None (occurrence: None)
  Receive Date: 20040223
  Receipt Date: 20040212
  Transmission Date: 20041129
  Serious: Yes (Death)
  Sender: FDA-Public Use
  Company Number: US-JNJFOC-20040203331

PATIENT
  Age: 56 Year
  Sex: Male

DRUGS (5)
  1. LEVAQUIN [Suspect]
     Indication: MEDICAL DEVICE COMPLICATION
     Dosage: 250 MG, 3 IN 1 DAY
  2. FUROSEMIDE [Concomitant]
  3. HYDROCODONE (HYDROCODONE) [Concomitant]
  4. METHYLPHENIDATE HCL [Concomitant]
  5. LINEZOLID (LINEZOLID) [Concomitant]

REACTIONS (1)
  - DEATH [None]
